FAERS Safety Report 6822844-9 (Version None)
Quarter: 2010Q3

REPORT INFORMATION
  Report Type: 
  Country: None (occurrence: None)
  Receive Date: 20100708
  Receipt Date: 20100525
  Transmission Date: 20110219
  Serious: Yes (Hospitalization, Other)
  Sender: FDA-Public Use
  Company Number: US-BAXTER-2010BH001584

PATIENT
  Age: 63 Year
  Sex: Female
  Weight: 106 kg

DRUGS (11)
  1. HEPARIN SODIUM [Suspect]
     Indication: HAEMATOMA EVACUATION
     Route: 042
     Dates: start: 20080118, end: 20080202
  2. HEPARIN SODIUM [Suspect]
     Indication: SMALL INTESTINAL RESECTION
     Route: 042
     Dates: start: 20080118, end: 20080202
  3. PRILOSEC [Concomitant]
     Indication: PRODUCT USED FOR UNKNOWN INDICATION
     Route: 065
  4. MURO 128 [Concomitant]
     Indication: PRODUCT USED FOR UNKNOWN INDICATION
     Route: 047
  5. ESOMEPRAZOLE MAGNESIUM [Concomitant]
     Indication: PRODUCT USED FOR UNKNOWN INDICATION
     Route: 065
  6. ERGOCALCIFEROL [Concomitant]
     Indication: PRODUCT USED FOR UNKNOWN INDICATION
     Route: 065
  7. LORATADINE [Concomitant]
     Indication: PRODUCT USED FOR UNKNOWN INDICATION
     Route: 065
  8. OXYBUTYNIN CHLORIDE [Concomitant]
     Indication: PRODUCT USED FOR UNKNOWN INDICATION
     Route: 065
  9. IMIPRAMINE HYDROCHLORIDE [Concomitant]
     Indication: PRODUCT USED FOR UNKNOWN INDICATION
     Route: 065
  10. FLUTICASONE [Concomitant]
     Indication: PRODUCT USED FOR UNKNOWN INDICATION
     Route: 045
  11. CARBOXYMETHYLCELLULOSE SODIUM [Concomitant]
     Indication: PRODUCT USED FOR UNKNOWN INDICATION
     Route: 047

REACTIONS (16)
  - ABDOMINAL PAIN [None]
  - FISTULA DISCHARGE [None]
  - HAEMATOMA [None]
  - HYPOTENSION [None]
  - HYPOVOLAEMIA [None]
  - ILEUS [None]
  - LEUKOCYTOSIS [None]
  - NAUSEA [None]
  - OLIGURIA [None]
  - OSTEOARTHRITIS [None]
  - OXYGEN SATURATION DECREASED [None]
  - PULMONARY EMBOLISM [None]
  - PYREXIA [None]
  - TACHYCARDIA [None]
  - THYROID NEOPLASM [None]
  - VOMITING [None]
